FAERS Safety Report 5657400-1 (Version None)
Quarter: 2008Q1

REPORT INFORMATION
  Report Type: 
  Country: None (occurrence: None)
  Receive Date: 20080310
  Receipt Date: 20080222
  Transmission Date: 20080703
  Serious: No
  Sender: FDA-Public Use
  Company Number: PHBS2007JP20370

PATIENT
  Age: 60 Year
  Sex: Female

DRUGS (5)
  1. TEGRETOL [Suspect]
     Indication: PAIN
     Dosage: 100 MG DAILY
     Route: 048
     Dates: start: 20060101, end: 20070101
  2. TEGRETOL [Suspect]
     Dosage: 400 MG DAILY
     Route: 048
     Dates: start: 20070101, end: 20070501
  3. TEGRETOL [Suspect]
     Dosage: 200 MG DAILY
     Route: 048
     Dates: start: 20070501
  4. PAXIL [Concomitant]
     Dosage: 40 MG
     Route: 048
     Dates: start: 20040101, end: 20060101
  5. LUVOX [Concomitant]
     Dosage: 100 MG
     Route: 048
     Dates: start: 20060101

REACTIONS (1)
  - BLOOD CHOLESTEROL INCREASED [None]
